FAERS Safety Report 6221505-7 (Version None)
Quarter: 2009Q2

REPORT INFORMATION
  Report Type: 
  Country: None (occurrence: None)
  Receive Date: 20090610
  Receipt Date: 20090528
  Transmission Date: 20091009
  Serious: Yes (Hospitalization, Disabling, Other)
  Sender: FDA-Public Use
  Company Number: PHHY2009BR20927

PATIENT
  Sex: Male

DRUGS (5)
  1. EXELON [Suspect]
     Indication: DEMENTIA ALZHEIMER'S TYPE
     Dosage: 1.5 MG, 2 CAPSULES/ DAY
     Route: 048
  2. LESCOL [Suspect]
     Indication: BLOOD CHOLESTEROL ABNORMAL
     Dosage: 40 MG, QHS
     Route: 048
  3. ANCORON [Concomitant]
     Indication: TACHYCARDIA
     Dosage: 200 MG, 1 TABLET , 5 DAYS A WEEK
     Route: 048
  4. ASPIRIN [Concomitant]
     Indication: ANTICOAGULANT THERAPY
     Dosage: 100 MG, 1 TABLET/ DAY
     Route: 048
     Dates: start: 20020101
  5. ENALAPRIL MALEATE [Concomitant]
     Indication: BLOOD PRESSURE INCREASED
     Dosage: 5 MG, 1 TABLET/ DAY
     Route: 048

REACTIONS (5)
  - DYSURIA [None]
  - PNEUMONIA [None]
  - PROSTATECTOMY [None]
  - RENAL FAILURE [None]
  - URINARY TRACT INFECTION [None]
